FAERS Safety Report 13436617 (Version 1)
Quarter: 2017Q2

REPORT INFORMATION
  Report Type: Spontaneous
  Country: US (occurrence: US)
  Receive Date: 20170413
  Receipt Date: 20170413
  Transmission Date: 20170830
  Serious: No
  Sender: FDA-Public Use
  Company Number: US-ASTELLAS-2017US005978

PATIENT
  Age: 55 Year
  Sex: Male

DRUGS (2)
  1. ASTAGRAF XL [Suspect]
     Active Substance: TACROLIMUS
     Indication: PANCREAS TRANSPLANT
  2. ASTAGRAF XL [Suspect]
     Active Substance: TACROLIMUS
     Indication: RENAL TRANSPLANT
     Route: 048
     Dates: start: 20080401

REACTIONS (1)
  - Ear infection [Recovering/Resolving]

NARRATIVE: CASE EVENT DATE: 20170123
